FAERS Safety Report 5738699-X (Version None)
Quarter: 2008Q2

REPORT INFORMATION
  Report Type: 
  Country: None (occurrence: None)
  Receive Date: 20080512
  Receipt Date: 20080512
  Transmission Date: 20081010
  Serious: No
  Sender: FDA-Public Use
  Company Number: None

PATIENT
  Sex: Female
  Weight: 109.589 kg

DRUGS (1)
  1. CARVEDILOL [Suspect]
     Dosage: 12.5 MG 1.5 BID PO
     Route: 048
     Dates: start: 20080108

REACTIONS (3)
  - DIZZINESS [None]
  - DRUG INTOLERANCE [None]
  - NAUSEA [None]
